FAERS Safety Report 9140778 (Version 1)
Quarter: 2013Q1

REPORT INFORMATION
  Report Type: Spontaneous
  Country: US (occurrence: None)
  Receive Date: 20130227
  Receipt Date: 20130227
  Transmission Date: 20140127
  Serious: Yes (Death)
  Sender: FDA-Public Use
  Company Number: SYM-2013-00063

PATIENT
  Age: 47 Year
  Sex: Male

DRUGS (5)
  1. BUPROPION (BUPROPION) (UNKNOWN) (BUPROPION) [Suspect]
     Indication: PRODUCT USED FOR UNKNOWN INDICATION
     Dosage: NOT REPORTED,  INGESTION
  2. CITALOPRAM (CITALOPRAM) (CITALOPRAM) [Suspect]
     Indication: PRODUCT USED FOR UNKNOWN INDICATION
     Dosage: NOT REPORTED,  ORAL
     Route: 048
  3. ZOLPIDEM (ZOLPIDEM) (UNKNOWN) (ZOLPIDEM) [Suspect]
     Indication: PRODUCT USED FOR UNKNOWN INDICATION
     Dosage: NOT REPORTED,  ORAL
     Route: 048
  4. ZOLPIDEM (ZOLPIDEM) (UNKNOWN) (ZOLPIDEM) [Suspect]
     Dosage: NOT REPORTED,  ORAL
     Route: 048
  5. SOLANUM DULCAMARA (ALL OTHER THERAPEUTIC PRODUCTS) (UNKNOWN) (NULL) [Suspect]
     Indication: PRODUCT USED FOR UNKNOWN INDICATION
     Dosage: NOT REPORTED,  ORAL
     Route: 048

REACTIONS (2)
  - Poisoning [None]
  - Completed suicide [None]
